FAERS Safety Report 4687480-1 (Version None)
Quarter: 2005Q2

REPORT INFORMATION
  Report Type: 
  Country: None (occurrence: None)
  Receive Date: 20050609
  Receipt Date: 20050609
  Transmission Date: 20051028
  Serious: Yes (Hospitalization)
  Sender: FDA-Public Use
  Company Number: None

PATIENT
  Age: 57 Year
  Sex: Male
  Weight: 86 kg

DRUGS (11)
  1. ENOXAPARIN SODIUM [Suspect]
     Indication: DEEP VEIN THROMBOSIS
     Dosage: 85MG    EVERY 12 HOURS   SUBCUTANEO
     Route: 058
     Dates: start: 20050201, end: 20050603
  2. ENOXAPARIN SODIUM [Suspect]
     Indication: DISEASE RECURRENCE
     Dosage: 85MG    EVERY 12 HOURS   SUBCUTANEO
     Route: 058
     Dates: start: 20050201, end: 20050603
  3. COMPAZINE [Concomitant]
  4. NORVASC [Concomitant]
  5. LORTAB [Concomitant]
  6. MS CONTIN [Concomitant]
  7. PROTONIX [Concomitant]
  8. LOVENOX [Concomitant]
  9. ZOFRAN [Concomitant]
  10. COLACE [Concomitant]
  11. AMBIEN [Concomitant]

REACTIONS (1)
  - PLATELET COUNT DECREASED [None]
